FAERS Safety Report 6727430-7 (Version None)
Quarter: 2010Q2

REPORT INFORMATION
  Report Type: 
  Country: None (occurrence: None)
  Receive Date: 20100512
  Receipt Date: 20100322
  Transmission Date: 20101027
  Serious: No
  Sender: FDA-Public Use
  Company Number: 1000012638

PATIENT
  Age: 69 Year
  Sex: Female

DRUGS (7)
  1. SAVELLA [Suspect]
     Indication: FIBROMYALGIA
     Dosage: 12.5 MG (12.5 MG, 1 IN 1 D) ORAL; 25 MG (12.5 MG, 2 IN 1 D) ORAL; 50 MG (25 MG, 2 IN1 D) ORAL; 100 M
     Route: 048
     Dates: start: 20090101, end: 20090101
  2. SAVELLA [Suspect]
     Indication: FIBROMYALGIA
     Dosage: 12.5 MG (12.5 MG, 1 IN 1 D) ORAL; 25 MG (12.5 MG, 2 IN 1 D) ORAL; 50 MG (25 MG, 2 IN1 D) ORAL; 100 M
     Route: 048
     Dates: start: 20090101, end: 20090101
  3. SAVELLA [Suspect]
     Indication: FIBROMYALGIA
     Dosage: 12.5 MG (12.5 MG, 1 IN 1 D) ORAL; 25 MG (12.5 MG, 2 IN 1 D) ORAL; 50 MG (25 MG, 2 IN1 D) ORAL; 100 M
     Route: 048
     Dates: start: 20090901, end: 20090101
  4. SAVELLA [Suspect]
     Indication: FIBROMYALGIA
     Dosage: 12.5 MG (12.5 MG, 1 IN 1 D) ORAL; 25 MG (12.5 MG, 2 IN 1 D) ORAL; 50 MG (25 MG, 2 IN1 D) ORAL; 100 M
     Route: 048
     Dates: start: 20090101
  5. PROZAC [Concomitant]
  6. LEVOTHYROXINE SODIUM [Concomitant]
  7. VITAMIN D [Concomitant]

REACTIONS (9)
  - ANXIETY [None]
  - BLOOD PRESSURE INCREASED [None]
  - DIARRHOEA [None]
  - DIZZINESS [None]
  - HALLUCINATION, AUDITORY [None]
  - HEART RATE INCREASED [None]
  - HYPERHIDROSIS [None]
  - NAUSEA [None]
  - VOMITING [None]
